FAERS Safety Report 13781376 (Version 1)
Quarter: 2017Q3

REPORT INFORMATION
  Report Type: Spontaneous
  Country: US (occurrence: US)
  Receive Date: 20170721
  Receipt Date: 20170721
  Transmission Date: 20171127
  Serious: Yes (Life-Threatening, Hospitalization)
  Sender: FDA-Public Use
  Company Number: None

PATIENT
  Age: 67 Year
  Sex: Male

DRUGS (1)
  1. AMIODARONE [Suspect]
     Active Substance: AMIODARONE
     Indication: ATRIAL FIBRILLATION
     Route: 048
     Dates: start: 20170213, end: 20170223

REACTIONS (7)
  - Acute respiratory distress syndrome [None]
  - Cardiac arrest [None]
  - Pulmonary toxicity [None]
  - Aspiration [None]
  - Respiratory failure [None]
  - Pneumonia viral [None]
  - Pulmonary fibrosis [None]

NARRATIVE: CASE EVENT DATE: 20170222
